FAERS Safety Report 10201379 (Version 2)
Quarter: 2014Q2

REPORT INFORMATION
  Report Type: Report from Study
  Country: US (occurrence: US)
  Receive Date: 20140528
  Receipt Date: 20140528
  Transmission Date: 20141212
  Serious: Yes (Hospitalization)
  Sender: FDA-Public Use
  Company Number: PHHO2014US003748

PATIENT
  Age: 55 Year
  Sex: Male
  Weight: 84.6 kg

DRUGS (1)
  1. AFINITOR [Suspect]
     Indication: THYROID CANCER
     Dosage: UNK
     Route: 048
     Dates: end: 20140306

REACTIONS (2)
  - Atypical pneumonia [Unknown]
  - Clostridium difficile colitis [Recovering/Resolving]
